FAERS Safety Report 21793935 (Version 1)
Quarter: 2022Q4

REPORT INFORMATION
  Report Type: Report from Study
  Country: US (occurrence: US)
  Receive Date: 20221229
  Receipt Date: 20221229
  Transmission Date: 20230113
  Serious: Yes (Other)
  Sender: FDA-Public Use
  Company Number: US-MYLANLABS-2022M1144584

PATIENT
  Sex: Male

DRUGS (28)
  1. DOXORUBICIN [Suspect]
     Active Substance: DOXORUBICIN
     Indication: Non-Hodgkin^s lymphoma stage IV
     Dosage: UNK, CYCLE; AS A PART OF R-CHOP REGIMEN FOR 6 CYCLES
     Route: 065
  2. DOXORUBICIN [Suspect]
     Active Substance: DOXORUBICIN
     Indication: Marginal zone lymphoma stage IV
  3. PREDNISONE [Suspect]
     Active Substance: PREDNISONE
     Indication: Non-Hodgkin^s lymphoma stage IV
     Dosage: UNK, CYCLE; AS A PART OF R-CHOP REGIMEN FOR 6 CYCLES
     Route: 065
  4. PREDNISONE [Suspect]
     Active Substance: PREDNISONE
     Indication: Marginal zone lymphoma stage IV
  5. METHOTREXATE [Suspect]
     Active Substance: METHOTREXATE
     Indication: Non-Hodgkin^s lymphoma stage IV
     Dosage: UNK; HIGH DOSE
     Route: 065
  6. METHOTREXATE [Suspect]
     Active Substance: METHOTREXATE
     Indication: Marginal zone lymphoma stage IV
  7. METHOTREXATE [Suspect]
     Active Substance: METHOTREXATE
     Indication: Non-Hodgkin^s lymphoma stage IV
     Dosage: 2500 MILLIGRAM/SQ. METER, CYCLE; ON DAY 1 OF THE WEEKS 1, 3, 5, 7 AND 9; FOR 2 CYCLES
     Route: 042
  8. METHOTREXATE [Suspect]
     Active Substance: METHOTREXATE
     Indication: Marginal zone lymphoma stage IV
     Dosage: 12 MILLIGRAM, CYCLE (ON DAY 1 OF WEEK 2, 4, 6 AND 8; FOR 2 CYCLES)
     Route: 037
  9. DEXAMETHASONE [Suspect]
     Active Substance: DEXAMETHASONE
     Indication: Non-Hodgkin^s lymphoma stage IV
     Dosage: 16 MILLIGRAM, QD; CYCLICAL; FOR WEEK 1
     Route: 048
  10. DEXAMETHASONE [Suspect]
     Active Substance: DEXAMETHASONE
     Indication: Marginal zone lymphoma stage IV
     Dosage: 12 MILLIGRAM, QD; CYCLICAL; FOR WEEK 2
     Route: 048
  11. DEXAMETHASONE [Suspect]
     Active Substance: DEXAMETHASONE
     Dosage: 8 MILLIGRAM, QD; CYCLICAL; FOR WEEK 3
     Route: 048
  12. DEXAMETHASONE [Suspect]
     Active Substance: DEXAMETHASONE
     Dosage: 6 MILLIGRAM, QD; CYCLICAL; FOR WEEK 4
     Route: 048
  13. DEXAMETHASONE [Suspect]
     Active Substance: DEXAMETHASONE
     Dosage: 4 MILLIGRAM, QD; CYCLICAL; FOR WEEK 5
     Route: 048
  14. DEXAMETHASONE [Suspect]
     Active Substance: DEXAMETHASONE
     Dosage: 2 MILLIGRAM, QD; CYCLICAL; FOR WEEK 6
     Route: 048
  15. CYTARABINE [Suspect]
     Active Substance: CYTARABINE
     Indication: Non-Hodgkin^s lymphoma stage IV
     Dosage: 3000 MILLIGRAM, QD; CYCLICAL; ON DAY 1 AND DAY 2 FOR WEEK 16 AND WEEK 19
     Route: 048
  16. CYTARABINE [Suspect]
     Active Substance: CYTARABINE
     Indication: Marginal zone lymphoma stage IV
  17. RITUXIMAB [Suspect]
     Active Substance: RITUXIMAB
     Indication: Non-Hodgkin^s lymphoma stage IV
     Dosage: UNK, CYCLE; AS A PART OF R-CHOP REGIMEN FOR 6 CYCLES
     Route: 065
  18. RITUXIMAB [Suspect]
     Active Substance: RITUXIMAB
     Indication: Marginal zone lymphoma stage IV
  19. CYCLOPHOSPHAMIDE [Suspect]
     Active Substance: CYCLOPHOSPHAMIDE
     Indication: Non-Hodgkin^s lymphoma stage IV
     Dosage: UNK, CYCLE; AS A PART OF R-CHOP REGIMEN FOR 6 CYCLES
     Route: 065
  20. CYCLOPHOSPHAMIDE [Suspect]
     Active Substance: CYCLOPHOSPHAMIDE
     Indication: Marginal zone lymphoma stage IV
  21. LEUCOVORIN [Concomitant]
     Active Substance: LEUCOVORIN
     Indication: Chemotherapy side effect prophylaxis
     Dosage: 20 MILLIGRAM, Q6H; CYCLICAL; FOR 12 DOSE ON DAY 1 OF WEEKS 1, 3, 5, 7 AND 9 AFTER 24 HOURS FROM STAR
     Route: 048
  22. LEUCOVORIN [Concomitant]
     Active Substance: LEUCOVORIN
     Dosage: 10 MILLIGRAM, Q6H; CYCLICAL; FOR A TOTAL OF 8 DOSES AFTER STARTING INTRATHECAL METHOTREXATE
     Route: 048
  23. VINCRISTINE [Suspect]
     Active Substance: VINCRISTINE
     Indication: Non-Hodgkin^s lymphoma stage IV
     Dosage: UNK, CYCLE; AS A PART OF R-CHOP REGIMEN FOR 6 CYCLES
     Route: 065
  24. VINCRISTINE [Suspect]
     Active Substance: VINCRISTINE
     Indication: Marginal zone lymphoma stage IV
  25. VINCRISTINE [Suspect]
     Active Substance: VINCRISTINE
     Indication: Non-Hodgkin^s lymphoma stage IV
     Dosage: 1.4 MILLIGRAM/SQ. METER, CYCLE; ON DAY 1 OF WEEKS 1, 3, 5, 7 AND 9.
     Route: 042
  26. VINCRISTINE [Suspect]
     Active Substance: VINCRISTINE
     Indication: Marginal zone lymphoma stage IV
  27. PROCARBAZINE [Suspect]
     Active Substance: PROCARBAZINE
     Indication: Non-Hodgkin^s lymphoma stage IV
     Dosage: 100 MILLIGRAM/SQ. METER, CYCLE; ON DAY 1-7 OF WEEKS 1,5 AND 9
     Route: 048
  28. PROCARBAZINE [Suspect]
     Active Substance: PROCARBAZINE
     Indication: Marginal zone lymphoma stage IV

REACTIONS (2)
  - Drug ineffective [Unknown]
  - Disease progression [Unknown]
